FAERS Safety Report 7997619-8 (Version None)
Quarter: 2011Q4

REPORT INFORMATION
  Report Type: 
  Country: None (occurrence: None)
  Receive Date: 20111221
  Receipt Date: 20111214
  Transmission Date: 20120403
  Serious: Yes (Other)
  Sender: FDA-Public Use
  Company Number: US-PFIZER INC-2009296933

PATIENT
  Sex: Female

DRUGS (2)
  1. LIPITOR [Suspect]
     Dosage: UNK
  2. ZOLOFT [Suspect]
     Dosage: UNK

REACTIONS (5)
  - MYOCARDIAL INFARCTION [None]
  - ACCIDENT [None]
  - WITHDRAWAL SYNDROME [None]
  - CEREBRAL HAEMORRHAGE [None]
  - HAEMORRHAGE [None]
